FAERS Safety Report 17254810 (Version 3)
Quarter: 2020Q1

REPORT INFORMATION
  Report Type: Report from Study
  Country: GB (occurrence: GB)
  Receive Date: 20200109
  Receipt Date: 20200212
  Transmission Date: 20200409
  Serious: Yes (Other)
  Sender: FDA-Public Use
  Company Number: GB-SAMSUNG BIOEPIS-SB-2019-40014

PATIENT
  Age: 47 Year
  Sex: Female

DRUGS (4)
  1. IMRALDI [Suspect]
     Active Substance: ADALIMUMAB
     Dosage: WEEK ONE
     Route: 058
     Dates: start: 20191226
  2. IMRALDI [Suspect]
     Active Substance: ADALIMUMAB
     Indication: PSORIASIS
     Dosage: WEEK ZERO
     Route: 058
     Dates: start: 20191219
  3. IMRALDI [Suspect]
     Active Substance: ADALIMUMAB
     Route: 058
  4. IMRALDI [Suspect]
     Active Substance: ADALIMUMAB
     Dosage: WEEK 3
     Route: 058

REACTIONS (12)
  - Back pain [Recovered/Resolved]
  - Pain [Recovered/Resolved]
  - Renal pain [Unknown]
  - Dizziness [Recovered/Resolved]
  - Ill-defined disorder [Unknown]
  - Productive cough [Recovered/Resolved]
  - Myalgia [Recovered/Resolved]
  - Cough [Unknown]
  - Pain [Recovered/Resolved]
  - Spinal pain [Unknown]
  - Somnolence [Recovered/Resolved]
  - Insomnia [Unknown]

NARRATIVE: CASE EVENT DATE: 20191219
